FAERS Safety Report 25975000 (Version 1)
Quarter: 2025Q4

REPORT INFORMATION
  Report Type: Spontaneous
  Country: US (occurrence: None)
  Receive Date: 20251029
  Receipt Date: 20251029
  Transmission Date: 20260117
  Serious: No
  Sender: UCB
  Company Number: US-UCBSA-2025050301

PATIENT
  Weight: 111.13 kg

DRUGS (1)
  1. BIMZELX [Suspect]
     Active Substance: BIMEKIZUMAB-BKZX
     Indication: Hidradenitis
     Dosage: 320 MILLIGRAM, EV 2 WEEKS(QOW)

REACTIONS (5)
  - Fatigue [Recovered/Resolved]
  - Hidradenitis [Recovering/Resolving]
  - Condition aggravated [Recovering/Resolving]
  - Loss of personal independence in daily activities [Recovering/Resolving]
  - Product dose omission issue [Unknown]
